FAERS Safety Report 16019704 (Version 7)
Quarter: 2020Q4

REPORT INFORMATION
  Report Type: Report from Study
  Country: JP (occurrence: JP)
  Receive Date: 20190228
  Receipt Date: 20201015
  Transmission Date: 20210113
  Serious: Yes (Hospitalization)
  Sender: FDA-Public Use
  Company Number: PHJP2015JP014089

PATIENT
  Age: 42 Year
  Sex: Female
  Weight: 50 kg

DRUGS (20)
  1. LUMICEF [Suspect]
     Active Substance: BRODALUMAB
     Indication: PSORIATIC ARTHROPATHY
     Dosage: 210 MG, UNK
     Route: 058
     Dates: end: 20180226
  2. RINDERON [Concomitant]
     Indication: PUSTULAR PSORIASIS
     Dosage: 0.375 MG, UNK
     Route: 048
     Dates: end: 20151019
  3. PREDNISOLONE. [Suspect]
     Active Substance: PREDNISOLONE
     Indication: PUSTULAR PSORIASIS
     Dosage: UNK
     Route: 048
  4. METOLATE [Concomitant]
     Active Substance: METHOTREXATE
     Indication: PSORIATIC ARTHROPATHY
     Dosage: 4 MG, BID
     Route: 048
  5. DAIPHEN [Concomitant]
     Active Substance: SULFAMETHOXAZOLE\TRIMETHOPRIM
     Indication: PSORIASIS
     Dosage: 1 DF, UNK
     Route: 048
  6. SALAZOSULFAPYRIDINE [Concomitant]
     Active Substance: SULFASALAZINE
     Indication: PUSTULAR PSORIASIS
     Dosage: UNK
     Route: 065
  7. COSENTYX [Suspect]
     Active Substance: SECUKINUMAB
     Dosage: 300 MG, Q4W
     Route: 058
     Dates: start: 20151228
  8. TIGASON [Concomitant]
     Indication: PSORIATIC ARTHROPATHY
     Dosage: 10 MG, TID
     Route: 048
     Dates: end: 20151228
  9. METOLATE [Concomitant]
     Active Substance: METHOTREXATE
     Indication: PUSTULAR PSORIASIS
  10. COSENTYX [Suspect]
     Active Substance: SECUKINUMAB
     Dosage: 300 MG, QW
     Route: 058
     Dates: start: 20150826, end: 20150909
  11. COSENTYX [Suspect]
     Active Substance: SECUKINUMAB
     Dosage: 300 MG, Q4W
     Route: 058
     Dates: start: 20160125
  12. NEXIUM [Concomitant]
     Active Substance: ESOMEPRAZOLE MAGNESIUM
     Indication: PSORIASIS
     Dosage: 20 MG, UNK
     Route: 048
  13. COSENTYX [Suspect]
     Active Substance: SECUKINUMAB
     Indication: PSORIATIC ARTHROPATHY
     Dosage: 300 MG, QW
     Route: 058
     Dates: start: 20150729
  14. COSENTYX [Suspect]
     Active Substance: SECUKINUMAB
     Dosage: 300 MG, QW
     Route: 058
     Dates: start: 20150805
  15. COSENTYX [Suspect]
     Active Substance: SECUKINUMAB
     Dosage: 300 MG, Q4W
     Route: 058
     Dates: start: 20151007
  16. RINDERON [Concomitant]
     Indication: PSORIATIC ARTHROPATHY
     Dosage: 0.5 MG/DAY, 1.0 MG/DAY, IN ALTERNATE DAYS
     Route: 048
  17. FOLIAMIN [Concomitant]
     Active Substance: FOLIC ACID
     Indication: PSORIASIS
     Dosage: 5 MG, UNK
     Route: 048
  18. TIGASON [Concomitant]
     Indication: PUSTULAR PSORIASIS
  19. COSENTYX [Suspect]
     Active Substance: SECUKINUMAB
     Dosage: 300 MG, Q4W
     Route: 058
     Dates: start: 20151104
  20. COSENTYX [Suspect]
     Active Substance: SECUKINUMAB
     Dosage: 300 MG, Q4W
     Route: 058
     Dates: start: 20151130

REACTIONS (9)
  - Erythema [Unknown]
  - Pruritus [Unknown]
  - Urticaria [Unknown]
  - Flushing [Unknown]
  - Anaphylactic reaction [Recovered/Resolved]
  - Rash [Unknown]
  - Skin swelling [Unknown]
  - Skin oedema [Unknown]
  - Allergic reaction to excipient [Unknown]

NARRATIVE: CASE EVENT DATE: 20150805
